FAERS Safety Report 21413627 (Version 3)
Quarter: 2022Q4

REPORT INFORMATION
  Report Type: Report from Study
  Country: US (occurrence: US)
  Receive Date: 20221006
  Receipt Date: 20221115
  Transmission Date: 20230113
  Serious: Yes (Hospitalization)
  Sender: FDA-Public Use
  Company Number: US-BIOGEN-2022BI01159673

PATIENT
  Sex: Female

DRUGS (2)
  1. TECFIDERA [Suspect]
     Active Substance: DIMETHYL FUMARATE
     Indication: Multiple sclerosis
     Dosage: MAINTENANCE DOSE
     Route: 050
     Dates: start: 20131218, end: 20210701
  2. TECFIDERA [Suspect]
     Active Substance: DIMETHYL FUMARATE
     Route: 050
     Dates: start: 2022

REACTIONS (7)
  - Malignant neoplasm of ampulla of Vater [Unknown]
  - Gastrooesophageal reflux disease [Not Recovered/Not Resolved]
  - Impaired gastric emptying [Unknown]
  - Inappropriate schedule of product administration [Unknown]
  - Vomiting [Recovered/Resolved]
  - Flushing [Recovered/Resolved]
  - Dyspepsia [Unknown]
